FAERS Safety Report 20584683 (Version 1)
Quarter: 2022Q1

REPORT INFORMATION
  Report Type: Spontaneous
  Country: US (occurrence: US)
  Receive Date: 20220311
  Receipt Date: 20220311
  Transmission Date: 20220423
  Serious: No
  Sender: FDA-Public Use
  Company Number: US-PFIZER INC-2021641269

PATIENT
  Age: 75 Year
  Sex: Female
  Weight: 86.18 kg

DRUGS (1)
  1. SULFASALAZINE [Suspect]
     Active Substance: SULFASALAZINE
     Indication: Rheumatoid arthritis
     Dosage: 3 OF THE PFIZER SULFASALAZINE DM 500MG EXTENDED RELEASE TABLETS, TWO TIMES A DAY

REACTIONS (2)
  - Loss of personal independence in daily activities [Unknown]
  - Depressed mood [Unknown]
